FAERS Safety Report 6837123-3 (Version None)
Quarter: 2010Q3

REPORT INFORMATION
  Report Type: 
  Country: None (occurrence: None)
  Receive Date: 20100713
  Receipt Date: 20100707
  Transmission Date: 20110219
  Serious: Yes (Hospitalization)
  Sender: FDA-Public Use
  Company Number: US-AMGEN-US370599

PATIENT
  Sex: Female

DRUGS (17)
  1. PANITUMUMAB [Suspect]
     Indication: SQUAMOUS CELL CARCINOMA
     Route: 042
     Dates: start: 20090923, end: 20090923
  2. VANCOMYCIN [Concomitant]
     Route: 042
     Dates: start: 20091016
  3. CELEXA [Concomitant]
     Route: 048
     Dates: start: 20091017
  4. DECADRON [Concomitant]
     Route: 048
     Dates: start: 20091017
  5. ALLEGRA [Concomitant]
     Dates: start: 20090904
  6. ALPHAGAN [Concomitant]
     Route: 047
     Dates: start: 20090904
  7. COLACE [Concomitant]
  8. COSOPT [Concomitant]
     Route: 047
  9. DORZOLAMIDE [Concomitant]
     Route: 047
  10. FENTANYL [Concomitant]
     Route: 062
     Dates: start: 20091014
  11. SYNTHROID [Concomitant]
     Dates: start: 20091014
  12. GLIMEPIRIDE [Concomitant]
  13. K-DUR [Concomitant]
  14. LATANOPROST [Concomitant]
     Route: 047
  15. MULTI-VITAMINS [Concomitant]
     Route: 048
  16. OXYCODONE HCL [Concomitant]
  17. SENNA [Concomitant]

REACTIONS (3)
  - CARDIAC FAILURE CONGESTIVE [None]
  - FATIGUE [None]
  - PNEUMONIA [None]
